FAERS Safety Report 25926119 (Version 1)
Quarter: 2025Q4

REPORT INFORMATION
  Report Type: Spontaneous
  Country: US (occurrence: US)
  Receive Date: 20251015
  Receipt Date: 20251015
  Transmission Date: 20260118
  Serious: Yes (Other)
  Sender: ORGANON
  Company Number: US-ORGANON-O2510USA001007

PATIENT
  Age: 50 Year
  Sex: Male

DRUGS (1)
  1. PROPECIA [Suspect]
     Active Substance: FINASTERIDE
     Indication: Alopecia
     Dosage: UNK

REACTIONS (4)
  - Suicidal ideation [Unknown]
  - Penile size reduced [Unknown]
  - Depression [Unknown]
  - Loss of libido [Unknown]
